FAERS Safety Report 8220960-0 (Version None)
Quarter: 2012Q1

REPORT INFORMATION
  Report Type: 
  Country: None (occurrence: None)
  Receive Date: 20120320
  Receipt Date: 20120307
  Transmission Date: 20120608
  Serious: Yes (Hospitalization)
  Sender: FDA-Public Use
  Company Number: JP-UCBSA-052114

PATIENT
  Age: 75 Year
  Sex: Female

DRUGS (15)
  1. PREDNISOLONE [Concomitant]
     Dosage: DAILY DOSE 2.5 MG
     Dates: start: 20090605
  2. NIFEDIPINE [Concomitant]
     Dosage: DAILY DOSE 10 MG
     Dates: start: 20100522
  3. KETOPROFEN [Concomitant]
     Dosage: DAILY DOSE QS
     Dates: start: 20090605
  4. GLYCYRRHIZA POWDER COMBINED DRUG [Concomitant]
     Dosage: DAILY DOSE 3.9 G
     Dates: start: 20090605
  5. IFENPRODIL TARTRATE [Concomitant]
     Dosage: DAILY DOSE 30 MG
     Dates: start: 20090605
  6. LOXOPROFEN SODIUM HYDRATE [Concomitant]
     Dosage: DAILY DOSE 60 MG
     Dates: start: 20090605
  7. FOLIC ACID [Concomitant]
     Dosage: DAILY DOSE 5 MG/WEEK
     Dates: start: 20090605
  8. RABEPRAZOLE SODIUM [Concomitant]
     Dosage: DAILY DOSE 10 MG
     Dates: start: 20090605
  9. CANDESARTAN CILEXETIL [Concomitant]
     Dosage: DAILY DOSE 12 MG
     Dates: start: 20090605
  10. SODIUM HYALURONATE [Concomitant]
     Dosage: DAILY DOSE QS
     Dates: start: 20110510
  11. CERTOLIZUMAB PEGOL [Suspect]
     Indication: RHEUMATOID ARTHRITIS
     Route: 058
     Dates: start: 20090605
  12. MELOXICAM [Concomitant]
     Dates: start: 20090605
  13. ALFACALCIDOL [Concomitant]
     Dosage: DAILY DOSE 0.5 MCG
     Dates: start: 20090605
  14. IRSOGLADINE MALEATE [Concomitant]
     Dosage: DAILY DOSE 2 MG
     Dates: start: 20090605
  15. METHOTREXATE [Concomitant]
     Dates: start: 20090605

REACTIONS (1)
  - HAEMOPTYSIS [None]
